FAERS Safety Report 7248253-9 (Version None)
Quarter: 2011Q1

REPORT INFORMATION
  Report Type: 
  Country: None (occurrence: None)
  Receive Date: 20110127
  Receipt Date: 20101228
  Transmission Date: 20110831
  Serious: Yes (Hospitalization, Other)
  Sender: FDA-Public Use
  Company Number: US-BAYER-2011-007567

PATIENT
  Sex: Female
  Weight: 68.027 kg

DRUGS (6)
  1. NASONEX [Concomitant]
     Route: 045
  2. LEVAQUIN [Concomitant]
     Route: 048
  3. YAZ [Suspect]
     Indication: CONTRACEPTION
     Dosage: UNK UNK, QD
     Dates: start: 20070301, end: 20070801
  4. CHANTIX [Concomitant]
     Route: 048
  5. NAPROXEN [Concomitant]
     Route: 048
  6. YASMIN [Suspect]
     Indication: CONTRACEPTION
     Dosage: UNK
     Dates: start: 20070301, end: 20070801

REACTIONS (5)
  - PULMONARY INFARCTION [None]
  - DYSPNOEA [None]
  - PAIN [None]
  - PULMONARY EMBOLISM [None]
  - HEADACHE [None]
